FAERS Safety Report 8847895 (Version 1)
Quarter: 2012Q4

REPORT INFORMATION
  Report Type: 
  Country: US (occurrence: US)
  Receive Date: 20121018
  Receipt Date: 20121018
  Transmission Date: 20130627
  Serious: No
  Sender: FDA-Public Use
  Company Number: US-BAYER-2012-109183

PATIENT

DRUGS (1)
  1. AVELOX [Suspect]

REACTIONS (2)
  - Dry mouth [None]
  - Headache [None]
